FAERS Safety Report 9335968 (Version 1)
Quarter: 2013Q2

REPORT INFORMATION
  Report Type: Report from Study
  Country: MX (occurrence: MX)
  Receive Date: 20130607
  Receipt Date: 20130607
  Transmission Date: 20140414
  Serious: Yes (Death)
  Sender: FDA-Public Use
  Company Number: MX-ROCHE-1233920

PATIENT
  Age: 62 Year
  Sex: Female
  Weight: 70 kg

DRUGS (4)
  1. HERCEPTIN [Suspect]
     Indication: BREAST CANCER METASTATIC
     Route: 065
     Dates: start: 20120310, end: 20120906
  2. HERCEPTIN [Suspect]
     Route: 065
     Dates: start: 20121020, end: 20130314
  3. PACLITAXEL [Concomitant]
     Indication: BREAST CANCER METASTATIC
     Route: 065
     Dates: start: 20120310, end: 20120906
  4. GEMCITABINE [Concomitant]
     Indication: BREAST CANCER METASTATIC
     Route: 065
     Dates: start: 20121020, end: 20130314

REACTIONS (1)
  - Death [Fatal]
